FAERS Safety Report 24030505 (Version 4)
Quarter: 2024Q3

REPORT INFORMATION
  Report Type: Spontaneous
  Country: US (occurrence: US)
  Receive Date: 20240628
  Receipt Date: 20240730
  Transmission Date: 20241016
  Serious: No
  Sender: PURDUE
  Company Number: US-PURDUE PHARMA-USA-2024-0310425

PATIENT
  Age: 56 Year
  Sex: Male
  Weight: 88.45 kg

DRUGS (2)
  1. MS CONTIN [Suspect]
     Active Substance: MORPHINE SULFATE
     Indication: Pain
     Dosage: 15 MILLIGRAM, BID
     Route: 048
     Dates: start: 202404
  2. IBUPROFEN [Concomitant]
     Active Substance: IBUPROFEN
     Indication: Spinal cord infarction
     Dosage: 1/2 TABLET 1-2TIMES DAILY PRN
     Route: 048

REACTIONS (14)
  - Palpitations [Recovered/Resolved]
  - Feeling hot [Recovered/Resolved]
  - Muscle spasms [Unknown]
  - Salivary hypersecretion [Recovered/Resolved]
  - Illness [Unknown]
  - Tremor [Unknown]
  - Nausea [Unknown]
  - Headache [Unknown]
  - Flushing [Unknown]
  - Inadequate analgesia [Recovered/Resolved]
  - Product taste abnormal [Recovered/Resolved]
  - Product formulation issue [Unknown]
  - Product substitution issue [Unknown]
  - Product substitution issue [Unknown]

NARRATIVE: CASE EVENT DATE: 20240420
